FAERS Safety Report 4881240-4 (Version None)
Quarter: 2005Q4

REPORT INFORMATION
  Report Type: 
  Country: None (occurrence: None)
  Receive Date: 20051201
  Receipt Date: 20050723
  Transmission Date: 20060501
  Serious: No
  Sender: FDA-Public Use
  Company Number: 2005PV000622

PATIENT
  Age: 65 Year
  Sex: Male
  Weight: 201.3971 kg

DRUGS (7)
  1. BYETTA [Suspect]
     Indication: DIABETES MELLITUS NON-INSULIN-DEPENDENT
     Dosage: 5 MCG; BID; SC
     Route: 058
     Dates: start: 20050721
  2. ASPIRIN [Concomitant]
  3. ACTOS [Concomitant]
  4. GLUCOPHAGE [Concomitant]
  5. ASCORBIC ACID [Concomitant]
  6. TOCOPHEROL CONCENTRATE CAP [Concomitant]
  7. MULTIVITAMIN [Concomitant]

REACTIONS (1)
  - INJECTION SITE EXTRAVASATION [None]
